FAERS Safety Report 15291542 (Version 1)
Quarter: 2018Q3

REPORT INFORMATION
  Report Type: Spontaneous
  Country: US (occurrence: US)
  Receive Date: 20180806
  Receipt Date: 20180806
  Transmission Date: 20181010
  Serious: Yes (Hospitalization)
  Sender: FDA-Public Use
  Company Number: None

PATIENT
  Sex: Female
  Weight: 56.7 kg

DRUGS (1)
  1. PARAGARD T 380A [Suspect]
     Active Substance: COPPER
     Dates: start: 20130813, end: 20180228

REACTIONS (4)
  - Cystitis ulcerative [None]
  - Loss of personal independence in daily activities [None]
  - Blood urine present [None]
  - Cystitis interstitial [None]
